FAERS Safety Report 16111007 (Version 2)
Quarter: 2025Q3

REPORT INFORMATION
  Report Type: Spontaneous
  Country: EU (occurrence: EU)
  Receive Date: 20190325
  Receipt Date: 20250731
  Transmission Date: 20251021
  Serious: Yes (Hospitalization, Other)
  Sender: AUROBINDO
  Company Number: EU-AUROBINDO-AUR-APL-2019-015300

PATIENT
  Age: 70 Year
  Sex: Male

DRUGS (6)
  1. AMOXICILLIN\CLAVULANIC ACID [Suspect]
     Active Substance: AMOXICILLIN\CLAVULANIC ACID
     Indication: Pyelonephritis acute
     Route: 065
  2. EMPAGLIFLOZIN [Suspect]
     Active Substance: EMPAGLIFLOZIN
     Indication: Product used for unknown indication
     Route: 065
  3. METFORMIN\VILDAGLIPTIN [Suspect]
     Active Substance: METFORMIN\VILDAGLIPTIN
     Indication: Product used for unknown indication
     Route: 065
  4. CLOPIDOGREL [Concomitant]
     Active Substance: CLOPIDOGREL BISULFATE
     Indication: Product used for unknown indication
     Route: 065
  5. AMLODIPINE\PERINDOPRIL [Concomitant]
     Active Substance: AMLODIPINE\PERINDOPRIL
     Indication: Product used for unknown indication
     Route: 065
  6. Fenofibrate;Pravastatin [Concomitant]
     Indication: Product used for unknown indication
     Route: 065

REACTIONS (16)
  - Euglycaemic diabetic ketoacidosis [Recovering/Resolving]
  - Nausea [Recovering/Resolving]
  - Hypokalaemia [Recovering/Resolving]
  - Food intolerance [Recovering/Resolving]
  - Vomiting [Recovering/Resolving]
  - Leukocytosis [Recovering/Resolving]
  - Neutrophilia [Recovering/Resolving]
  - C-reactive protein increased [Recovering/Resolving]
  - Blood glucose increased [Recovering/Resolving]
  - Acute kidney injury [Recovering/Resolving]
  - Hypophosphataemia [Recovering/Resolving]
  - Acidosis [Recovering/Resolving]
  - Metabolic acidosis [Recovering/Resolving]
  - Anion gap increased [Recovering/Resolving]
  - Glycosuria [Recovering/Resolving]
  - Ketonuria [Recovering/Resolving]
